FAERS Safety Report 22327382 (Version 1)
Quarter: 2023Q2

REPORT INFORMATION
  Report Type: Spontaneous
  Country: US (occurrence: US)
  Receive Date: 20230516
  Receipt Date: 20230516
  Transmission Date: 20230722
  Serious: No
  Sender: FDA-Public Use
  Company Number: US-RADIUS HEALTH INC.-2022US001202

PATIENT
  Age: 69 Year
  Sex: Female
  Weight: 44.4 kg

DRUGS (6)
  1. TYMLOS [Suspect]
     Active Substance: ABALOPARATIDE
     Indication: Osteoporosis
     Dosage: 80 MICROGRAM, QD
     Route: 058
     Dates: start: 20220310, end: 20220513
  2. SYNTHROID [Concomitant]
     Active Substance: LEVOTHYROXINE SODIUM
     Indication: Thyroid disorder
     Dosage: 125 MICROGRAM, QD
  3. FOLIC ACID [Concomitant]
     Active Substance: FOLIC ACID
     Indication: Product used for unknown indication
  4. POTASSIUM [Concomitant]
     Active Substance: POTASSIUM
     Indication: Product used for unknown indication
  5. ASPIRIN [Concomitant]
     Active Substance: ASPIRIN
     Indication: Product used for unknown indication
  6. CLONAZEPAM [Concomitant]
     Active Substance: CLONAZEPAM
     Indication: Sleep disorder therapy
     Dosage: 1 MILLIGRAM, QD AT NIGHT

REACTIONS (8)
  - Balance disorder [Unknown]
  - Heart rate increased [Recovered/Resolved]
  - Nausea [Recovered/Resolved]
  - Abdominal pain upper [Recovered/Resolved]
  - Fatigue [Recovered/Resolved]
  - Dizziness [Recovered/Resolved]
  - Headache [Recovered/Resolved]
  - Bone pain [Recovered/Resolved]

NARRATIVE: CASE EVENT DATE: 20220310
